FAERS Safety Report 8194313-8 (Version None)
Quarter: 2012Q1

REPORT INFORMATION
  Report Type: 
  Country: None (occurrence: None)
  Receive Date: 20120308
  Receipt Date: 20120302
  Transmission Date: 20120608
  Serious: No
  Sender: FDA-Public Use
  Company Number: US-PFIZER INC-2012036438

PATIENT
  Sex: Female
  Weight: 126 kg

DRUGS (3)
  1. LYRICA [Suspect]
     Dosage: 150 MG, 2X/DAY
     Route: 048
     Dates: start: 20110101, end: 20110101
  2. LYRICA [Suspect]
     Indication: FIBROMYALGIA
     Dosage: 150 MG, DAILY
     Route: 048
     Dates: start: 20110401, end: 20110101
  3. HYDROCODONE [Concomitant]
     Indication: PAIN
     Dosage: 10/325 MG, 4X/DAY

REACTIONS (6)
  - HEADACHE [None]
  - NECK PAIN [None]
  - PAIN [None]
  - DRUG INEFFECTIVE [None]
  - JOINT SWELLING [None]
  - MALAISE [None]
